FAERS Safety Report 5628949-2 (Version None)
Quarter: 2008Q1

REPORT INFORMATION
  Report Type: 
  Country: None (occurrence: None)
  Receive Date: 20080214
  Receipt Date: 20080204
  Transmission Date: 20080703
  Serious: Yes (Death)
  Sender: FDA-Public Use
  Company Number: 2008-01091

PATIENT
  Age: 43 Year
  Sex: Female

DRUGS (7)
  1. FIORICET [Suspect]
  2. GEMFIBROZIL [Suspect]
  3. CYCLOBENZAPRINE HYDROCHLORIDE [Suspect]
  4. HYDROCODONE BITARTRATE + ACETAMINOPHEN [Suspect]
  5. OLANZAPINE [Suspect]
  6. OPIOIDS () [Suspect]
  7. OPIOID ANTAGONIST () [Suspect]

REACTIONS (1)
  - CARDIO-RESPIRATORY ARREST [None]
